FAERS Safety Report 7812632-9 (Version None)
Quarter: 2011Q4

REPORT INFORMATION
  Report Type: 
  Country: None (occurrence: None)
  Receive Date: 20111013
  Receipt Date: 20110705
  Transmission Date: 20120403
  Serious: No
  Sender: FDA-Public Use
  Company Number: US-NOVEN-11US002753

PATIENT
  Sex: Female

DRUGS (2)
  1. FENTANYL [Suspect]
     Indication: SPINAL COLUMN STENOSIS
     Dosage: 50 MCG
     Route: 062
     Dates: start: 20110623
  2. FENTANYL [Suspect]
     Indication: NEUROPATHY PERIPHERAL
     Dosage: UNK
     Route: 062
     Dates: end: 20110623

REACTIONS (2)
  - INADEQUATE ANALGESIA [None]
  - INTENTIONAL DRUG MISUSE [None]
